FAERS Safety Report 15090153 (Version 1)
Quarter: 2018Q2

REPORT INFORMATION
  Report Type: Spontaneous
  Country: US (occurrence: US)
  Receive Date: 20180629
  Receipt Date: 20180629
  Transmission Date: 20180711
  Serious: Yes (Hospitalization, Other)
  Sender: FDA-Public Use
  Company Number: US-009507513-1806USA008510

PATIENT
  Age: 50 Year
  Sex: Male

DRUGS (6)
  1. IPRATROPIUM BROMIDE. [Concomitant]
     Active Substance: IPRATROPIUM BROMIDE
     Indication: ASTHMA
     Dosage: 1500 MICROGRAM
  2. PROVENTIL [Suspect]
     Active Substance: ALBUTEROL
     Dosage: 10 MG, ONCE (GIVEN TWO HOURS LATER)
  3. PREDNISONE. [Concomitant]
     Active Substance: PREDNISONE
     Indication: ASTHMA
     Dosage: 60 MG, UNK
  4. AMITRIPTYLINE HYDROCHLORIDE. [Concomitant]
     Active Substance: AMITRIPTYLINE HYDROCHLORIDE
     Indication: TENSION HEADACHE
     Dosage: 10MG AS NEEDED
  5. PROVENTIL [Suspect]
     Active Substance: ALBUTEROL
     Dosage: 15 MG, ONCE
  6. ATORVASTATIN [Concomitant]
     Active Substance: ATORVASTATIN
     Dosage: 40 MG, DAILY

REACTIONS (1)
  - Lactic acidosis [Recovered/Resolved]
